FAERS Safety Report 7561039-0 (Version None)
Quarter: 2011Q2

REPORT INFORMATION
  Report Type: 
  Country: None (occurrence: None)
  Receive Date: 20110620
  Receipt Date: 20110620
  Transmission Date: 20111010
  Serious: Yes (Death)
  Sender: FDA-Public Use
  Company Number: None

PATIENT
  Age: 95 Year
  Sex: Female
  Weight: 65.7716 kg

DRUGS (1)
  1. AMIODARONE HCL [Suspect]
     Indication: ARRHYTHMIA
     Dosage: 2 TABLETS TWICE DAILY PO
     Route: 048
     Dates: start: 20110407, end: 20110429

REACTIONS (5)
  - DYSPNOEA [None]
  - DYSSTASIA [None]
  - PULMONARY TOXICITY [None]
  - LOSS OF CONTROL OF LEGS [None]
  - RESPIRATORY FAILURE [None]
